FAERS Safety Report 20080790 (Version 1)
Quarter: 2021Q4

REPORT INFORMATION
  Report Type: Report from Study
  Country: IL (occurrence: None)
  Receive Date: 20211117
  Receipt Date: 20211117
  Transmission Date: 20220304
  Serious: Yes (Other)
  Sender: FDA-Public Use
  Company Number: IL-Merck Healthcare KGaA-9278784

PATIENT
  Sex: Female

DRUGS (2)
  1. CHORIOGONADOTROPIN ALFA [Suspect]
     Active Substance: CHORIOGONADOTROPIN ALFA
     Indication: In vitro fertilisation
  2. TRIPTORELIN [Concomitant]
     Active Substance: TRIPTORELIN
     Indication: In vitro fertilisation

REACTIONS (3)
  - Pulmonary congestion [Recovered/Resolved]
  - Chest pain [Recovered/Resolved]
  - Ill-defined disorder [Recovered/Resolved]
